FAERS Safety Report 7020592-6 (Version None)
Quarter: 2010Q3

REPORT INFORMATION
  Report Type: 
  Country: None (occurrence: None)
  Receive Date: 20100929
  Receipt Date: 20100924
  Transmission Date: 20110219
  Serious: Yes (Hospitalization)
  Sender: FDA-Public Use
  Company Number: A0836523A

PATIENT
  Age: 58 Year
  Sex: Male
  Weight: 100 kg

DRUGS (6)
  1. AVANDIA [Suspect]
     Indication: TYPE 2 DIABETES MELLITUS
     Dosage: 4MG TWICE PER DAY
     Route: 048
     Dates: start: 20060113, end: 20081009
  2. DIOVAN [Concomitant]
  3. GLUCOPHAGE [Concomitant]
  4. NIFEREX [Concomitant]
  5. ZANTAC [Concomitant]
  6. METFORMIN [Concomitant]
     Dates: end: 20080901

REACTIONS (7)
  - ANAEMIA [None]
  - CARDIAC FAILURE CONGESTIVE [None]
  - DIABETES MELLITUS [None]
  - HEPATIC CIRRHOSIS [None]
  - LIVER INJURY [None]
  - RENAL DISORDER [None]
  - RENAL FAILURE ACUTE [None]
